FAERS Safety Report 6741993-7 (Version None)
Quarter: 2010Q2

REPORT INFORMATION
  Report Type: 
  Country: None (occurrence: None)
  Receive Date: 20100524
  Receipt Date: 20100517
  Transmission Date: 20101027
  Serious: Yes (Death, Life-Threatening)
  Sender: FDA-Public Use
  Company Number: VISP-NO-1003S-0121

PATIENT
  Age: 15 Day
  Sex: Male
  Weight: 4 kg

DRUGS (5)
  1. IODIXANOL [Suspect]
     Indication: LYMPHOCELE
     Dosage: 20 ML, SINGLE DOSE, BODY CAVITY
     Dates: start: 20100216, end: 20100216
  2. POLIDOCANOL (AETOXISCLEROL TAMPONNE) [Suspect]
     Dosage: 40 ML
  3. VOLUVEN [Suspect]
     Dosage: I.V.
     Route: 042
     Dates: start: 20100216, end: 20100216
  4. HUMAN SERUM ALBUMIN (VIALEBEX) [Suspect]
     Dosage: 100 ML, I.V.
     Route: 042
     Dates: start: 20100216, end: 20100216
  5. CEFAZOLIN [Suspect]
     Dosage: 150 MG, I. V.
     Route: 042
     Dates: start: 20100216, end: 20100216

REACTIONS (17)
  - ACUTE PULMONARY OEDEMA [None]
  - ANGIOPATHY [None]
  - ANURIA [None]
  - BRADYCARDIA [None]
  - CARDIO-RESPIRATORY ARREST [None]
  - CARDIOGENIC SHOCK [None]
  - COMA [None]
  - DISSEMINATED INTRAVASCULAR COAGULATION [None]
  - DRUG TOXICITY [None]
  - DYSPNOEA [None]
  - HAEMODYNAMIC INSTABILITY [None]
  - HEART RATE INCREASED [None]
  - HEPATOMEGALY [None]
  - HYPOTENSION [None]
  - LACTIC ACIDOSIS [None]
  - MYDRIASIS [None]
  - VENTRICULAR DYSFUNCTION [None]
